FAERS Safety Report 11621013 (Version 5)
Quarter: 2016Q3

REPORT INFORMATION
  Report Type: Spontaneous
  Country: PT (occurrence: FR)
  Receive Date: 20151012
  Receipt Date: 20160822
  Transmission Date: 20161109
  Serious: Yes (Life-Threatening)
  Sender: FDA-Public Use
  Company Number: FR-SUNOVION-2015SUN000479

PATIENT
  Age: 60 Year
  Sex: Male

DRUGS (2)
  1. ZEBINIX [Suspect]
     Active Substance: ESLICARBAZEPINE ACETATE
     Dosage: 800 MG, DAILY
     Route: 048
     Dates: start: 2015, end: 20150920
  2. ZEBINIX [Suspect]
     Active Substance: ESLICARBAZEPINE ACETATE
     Indication: EPILEPSY
     Dosage: UNK
     Route: 048
     Dates: start: 20150422, end: 2015

REACTIONS (5)
  - Suicidal ideation [Unknown]
  - Paranoia [Unknown]
  - Thinking abnormal [Unknown]
  - Fear [Unknown]
  - Discomfort [Unknown]

NARRATIVE: CASE EVENT DATE: 20150621
